FAERS Safety Report 16729738 (Version 2)
Quarter: 2019Q3

REPORT INFORMATION
  Report Type: Spontaneous
  Country: US (occurrence: US)
  Receive Date: 20190822
  Receipt Date: 20190829
  Transmission Date: 20191005
  Serious: No
  Sender: FDA-Public Use
  Company Number: US-PFIZER INC-2019164331

PATIENT
  Age: 43 Year
  Sex: Female
  Weight: 86.18 kg

DRUGS (5)
  1. UPTRAVI [Concomitant]
     Active Substance: SELEXIPAG
     Indication: ARTERIOSCLEROSIS
     Dosage: 400 UG, 2X/DAY
  2. REVATIO [Suspect]
     Active Substance: SILDENAFIL CITRATE
     Indication: PULMONARY HYPERTENSION
     Dosage: 20 MG, 3X/DAY, [20MG ONE TABLET THREE TIMES A DAY]
  3. OPSUMIT [Concomitant]
     Active Substance: MACITENTAN
     Indication: CARDIAC DISORDER
     Dosage: 10 MG, 1X/DAY
  4. SPIRONOLACTONE. [Concomitant]
     Active Substance: SPIRONOLACTONE
     Indication: DIURETIC THERAPY
     Dosage: 25 MG, 2X/DAY
  5. REVATIO [Suspect]
     Active Substance: SILDENAFIL CITRATE
     Dosage: 40 MG, 3X/DAY (2 TABLETS 3 TIMES A DAY)

REACTIONS (3)
  - Off label use [Unknown]
  - Malaise [Unknown]
  - Dyspnoea [Unknown]
